FAERS Safety Report 9822054 (Version 6)
Quarter: 2014Q2

REPORT INFORMATION
  Report Type: Report from Study
  Country: JP (occurrence: JP)
  Receive Date: 20140116
  Receipt Date: 20140605
  Transmission Date: 20141212
  Serious: Yes (Hospitalization)
  Sender: FDA-Public Use
  Company Number: JP-SA-2014SA003879

PATIENT
  Age: 46 Year
  Sex: Male
  Weight: 71.3 kg

DRUGS (45)
  1. CABAZITAXEL [Suspect]
     Indication: PROSTATE CANCER METASTATIC
     Route: 042
     Dates: start: 20121114, end: 20121114
  2. CABAZITAXEL [Suspect]
     Indication: PROSTATE CANCER METASTATIC
     Route: 042
     Dates: start: 20131224, end: 20131224
  3. PREDNISOLONE [Suspect]
     Indication: PROSTATE CANCER METASTATIC
     Route: 048
     Dates: start: 20121114, end: 20140107
  4. AMLODIN [Concomitant]
     Indication: HYPERTENSION
     Route: 048
     Dates: start: 20080602, end: 20140107
  5. AMLODIN [Concomitant]
     Indication: PROPHYLAXIS
     Route: 048
     Dates: start: 20080602, end: 20140107
  6. DIOVAN [Concomitant]
     Indication: HYPERTENSION
     Route: 048
     Dates: start: 20100621, end: 20140107
  7. DIOVAN [Concomitant]
     Indication: PROPHYLAXIS
     Route: 048
     Dates: start: 20100621, end: 20140107
  8. LIVALO [Concomitant]
     Indication: DYSLIPIDAEMIA
     Route: 048
     Dates: start: 20080707, end: 20140107
  9. LIVALO [Concomitant]
     Indication: PROPHYLAXIS
     Route: 048
     Dates: start: 20080707, end: 20140107
  10. LONGES [Concomitant]
     Indication: HYPERTENSION
     Route: 048
     Dates: start: 20080707, end: 20140107
  11. LONGES [Concomitant]
     Indication: PROPHYLAXIS
     Route: 048
     Dates: start: 20080707, end: 20140107
  12. AMARYL [Concomitant]
     Indication: DIABETES MELLITUS
     Route: 048
     Dates: start: 20070706, end: 20140107
  13. AMARYL [Concomitant]
     Indication: PROPHYLAXIS
     Route: 048
     Dates: start: 20070706, end: 20140107
  14. JANUVIA [Concomitant]
     Indication: DIABETES MELLITUS
     Route: 048
     Dates: start: 20100215, end: 20140107
  15. JANUVIA [Concomitant]
     Indication: PROPHYLAXIS
     Route: 048
     Dates: start: 20100215, end: 20140107
  16. LYRICA [Concomitant]
     Indication: NEUROPATHY PERIPHERAL
     Route: 048
     Dates: start: 20120306, end: 20140107
  17. LYRICA [Concomitant]
     Indication: PROPHYLAXIS
     Route: 048
     Dates: start: 20120306, end: 20140107
  18. TRAMAL [Concomitant]
     Indication: NEUROPATHY PERIPHERAL
     Route: 048
     Dates: start: 20120306
  19. TRAMAL [Concomitant]
     Indication: PROPHYLAXIS
     Route: 048
     Dates: start: 20120306
  20. FERROUS SULFATE [Concomitant]
     Indication: ANAEMIA
     Route: 048
     Dates: start: 20130128, end: 20140107
  21. FERROUS SULFATE [Concomitant]
     Indication: PROPHYLAXIS
     Route: 048
     Dates: start: 20130128, end: 20140107
  22. ASPARA-CA [Concomitant]
     Indication: BLOOD CALCIUM DECREASED
     Route: 048
     Dates: start: 20130218, end: 20140107
  23. ASPARA-CA [Concomitant]
     Indication: PROPHYLAXIS
     Route: 048
     Dates: start: 20130218, end: 20140107
  24. METGLUCO [Concomitant]
     Indication: DIABETES MELLITUS
     Route: 048
     Dates: start: 20130304, end: 20140107
  25. METGLUCO [Concomitant]
     Indication: PROPHYLAXIS
     Route: 048
     Dates: start: 20130304, end: 20140107
  26. LAC B [Concomitant]
     Indication: DIARRHOEA
     Route: 048
     Dates: start: 20130729
  27. LAC B [Concomitant]
     Indication: PROPHYLAXIS
     Route: 048
     Dates: start: 20130729
  28. LAC B [Concomitant]
     Indication: DIARRHOEA
     Route: 048
     Dates: start: 20130806, end: 20140107
  29. LAC B [Concomitant]
     Indication: PROPHYLAXIS
     Route: 048
     Dates: start: 20130806, end: 20140107
  30. FUROSEMIDE [Concomitant]
     Indication: PROPHYLAXIS
     Route: 048
     Dates: start: 20101125
  31. ZOLEDRONIC ACID [Concomitant]
     Indication: PROPHYLAXIS
     Route: 043
     Dates: start: 20120308
  32. VANCOMYCIN HYDROCHLORIDE [Concomitant]
     Indication: PROPHYLAXIS
     Route: 048
     Dates: start: 20130806
  33. AMBROXOL HYDROCHLORIDE [Concomitant]
     Indication: PROPHYLAXIS
     Route: 048
     Dates: start: 20140106
  34. ALL OTHER THERAPEUTIC PRODUCTS [Concomitant]
     Route: 048
     Dates: start: 20140106
  35. LACTEC [Concomitant]
     Dosage: ROUTE- INTRACAVERNOUS
     Dates: start: 20140108, end: 20140108
  36. EPHEDRINE HYDROCHLORIDE [Concomitant]
     Dosage: ROUTE- INTRACAVERNOUS
     Dates: start: 20140108, end: 20140108
  37. MEROPENEM TRIHYDRATE [Concomitant]
     Dosage: ROUTE- INTRACAVERNOUS
     Dates: start: 20140108
  38. KN SOL. 3B [Concomitant]
     Dosage: ROUTE- INTRACAVERNOUS
     Dates: start: 20140108, end: 20140108
  39. RED BLOOD CELLS, CONCENTRATED [Concomitant]
     Dates: start: 20140108, end: 20140108
  40. MORPHINE HYDROCHLORIDE [Concomitant]
     Dates: start: 20140108, end: 20140114
  41. MIDAZOLAM [Concomitant]
     Dates: start: 20140108, end: 20140114
  42. NORADRENALINE [Concomitant]
     Dates: start: 20140108, end: 20140114
  43. IMMUNOGLOBULIN G HUMAN [Concomitant]
     Dates: start: 20140108, end: 20140110
  44. HYDROCORTISONE SODIUM SUCCINATE [Concomitant]
     Dates: start: 20140108
  45. INSULIN HUMAN [Concomitant]
     Dates: start: 20140108

REACTIONS (4)
  - Respiratory failure [Recovered/Resolved]
  - Movement disorder [Not Recovered/Not Resolved]
  - Pneumonia [Recovered/Resolved]
  - Sepsis [Recovered/Resolved]
